FAERS Safety Report 4981679-2 (Version None)
Quarter: 2006Q2

REPORT INFORMATION
  Report Type: 
  Country: None (occurrence: None)
  Receive Date: 20060425
  Receipt Date: 20060414
  Transmission Date: 20061013
  Serious: Yes (Other)
  Sender: FDA-Public Use
  Company Number: JP-JNJFOC-20060306556

PATIENT
  Age: 39 Year
  Sex: Male

DRUGS (7)
  1. LEVOFLOXACIN [Suspect]
     Route: 042
     Dates: start: 20060310, end: 20060315
  2. RANITIDINE [Concomitant]
     Indication: PROPHYLAXIS
     Route: 042
  3. PRIMPERAN TAB [Concomitant]
     Route: 042
  4. FUROSEMIDE [Concomitant]
     Route: 042
  5. NOLOTIL [Concomitant]
     Route: 042
  6. NOLOTIL [Concomitant]
     Indication: PAIN
     Route: 042
  7. ACETAMINOPHEN [Concomitant]
     Indication: PAIN
     Route: 042

REACTIONS (1)
  - DELIRIUM [None]
